FAERS Safety Report 12522712 (Version 1)
Quarter: 2016Q3

REPORT INFORMATION
  Report Type: Spontaneous
  Country: FR (occurrence: FR)
  Receive Date: 20160701
  Receipt Date: 20160701
  Transmission Date: 20161109
  Serious: Yes (Congenital Anomaly)
  Sender: FDA-Public Use
  Company Number: FR-ABBVIE-16P-056-1665264-00

PATIENT
  Sex: Female

DRUGS (1)
  1. DEPAKINE [Suspect]
     Active Substance: VALPROATE SODIUM
     Indication: MATERNAL EXPOSURE TIMING UNSPECIFIED
     Route: 064

REACTIONS (8)
  - Anger [Unknown]
  - Psychomotor retardation [Not Recovered/Not Resolved]
  - Enuresis [Not Recovered/Not Resolved]
  - Illiteracy [Unknown]
  - Abnormal behaviour [Not Recovered/Not Resolved]
  - Multiple congenital abnormalities [Not Recovered/Not Resolved]
  - Foetal exposure during pregnancy [Unknown]
  - Visual acuity reduced [Not Recovered/Not Resolved]
